FAERS Safety Report 12253352 (Version 1)
Quarter: 2016Q2

REPORT INFORMATION
  Report Type: Spontaneous
  Country: FR (occurrence: FR)
  Receive Date: 20160411
  Receipt Date: 20160411
  Transmission Date: 20160815
  Serious: Yes (Death, Hospitalization, Other)
  Sender: FDA-Public Use
  Company Number: FR-PFIZER INC-2016200617

PATIENT
  Age: 47 Year
  Sex: Male

DRUGS (11)
  1. EUPANTOL [Suspect]
     Active Substance: PANTOPRAZOLE SODIUM
     Dosage: UNK
     Route: 048
     Dates: start: 201412
  2. FLUOROURACILE ACCORD [Suspect]
     Active Substance: FLUOROURACIL
     Dosage: 33990 UNK, UNK
  3. HERCEPTIN [Suspect]
     Active Substance: TRASTUZUMAB
     Indication: OESOPHAGEAL CANCER METASTATIC
     Dosage: 472 MG, 1X/DAY
     Route: 041
  4. KEPPRA [Suspect]
     Active Substance: LEVETIRACETAM
     Dosage: LEVETIRACETAM 500 MG AT TWO DOSAGE FORMS ONCE A DAY
     Route: 048
     Dates: start: 201412
  5. IMOVANE [Suspect]
     Active Substance: ZOPICLONE
     Dosage: ZOPLCLONE 7.5 MG AT ONE DOSAGE FORM ONCE A DAY
     Route: 048
  6. CISPLATINE MYLAN [Suspect]
     Active Substance: CISPLATIN
     Indication: OESOPHAGEAL CANCER METASTATIC
     Dosage: 136 MG, UNK
     Route: 041
     Dates: start: 20141211
  7. HERCEPTIN [Suspect]
     Active Substance: TRASTUZUMAB
     Dosage: 350 MG, MONTHLY
     Route: 041
     Dates: start: 20141211, end: 20150309
  8. FLUOROURACILE ACCORD [Suspect]
     Active Substance: FLUOROURACIL
     Indication: OESOPHAGEAL CANCER METASTATIC
     Dosage: 6840 MG
     Route: 041
     Dates: start: 20141211
  9. CISPLATINE MYLAN [Suspect]
     Active Substance: CISPLATIN
     Dosage: 686 MG, UNK
  10. CISPLATINE MYLAN [Suspect]
     Active Substance: CISPLATIN
     Dosage: 135 MG, MONTHLY
     Route: 041
     Dates: start: 20141211, end: 20150306
  11. HERCEPTIN [Suspect]
     Active Substance: TRASTUZUMAB
     Dosage: 1862 UNK, UNK

REACTIONS (5)
  - Asthenia [Unknown]
  - Oesophageal cancer metastatic [Fatal]
  - Renal failure [Unknown]
  - Disease progression [Fatal]
  - Decreased appetite [Unknown]

NARRATIVE: CASE EVENT DATE: 20150326
